FAERS Safety Report 4354936-0 (Version None)
Quarter: 2004Q2

REPORT INFORMATION
  Report Type: 
  Country: None (occurrence: None)
  Receive Date: 20040510
  Receipt Date: 20040223
  Transmission Date: 20050107
  Serious: Yes (Other)
  Sender: FDA-Public Use
  Company Number: PHEH2004US02228

PATIENT
  Age: 62 Year
  Sex: Female

DRUGS (9)
  1. SANDIMMUNE [Suspect]
     Indication: RENAL TRANSPLANT
     Dosage: 150 MG, QD
     Route: 048
  2. SANDIMMUNE [Suspect]
     Dosage: 125 MG, QD
     Route: 048
     Dates: start: 20040201
  3. IMURAN [Concomitant]
  4. FOSAMAX [Concomitant]
  5. LANOXIN [Concomitant]
  6. PREDNISONE [Concomitant]
  7. LIPITOR [Concomitant]
  8. PRINIVIL [Concomitant]
  9. ATACAND [Concomitant]

REACTIONS (3)
  - ATRIAL FIBRILLATION [None]
  - HEART RATE INCREASED [None]
  - HEART RATE IRREGULAR [None]
